FAERS Safety Report 5968833-8 (Version None)
Quarter: 2008Q4

REPORT INFORMATION
  Report Type: 
  Country: None (occurrence: None)
  Receive Date: 20081125
  Receipt Date: 20081125
  Transmission Date: 20090506
  Serious: Yes (Disabling)
  Sender: FDA-Public Use
  Company Number: None

PATIENT
  Age: 47 Year
  Sex: Female
  Weight: 77.1115 kg

DRUGS (1)
  1. FACTIVE [Suspect]
     Indication: SINUSITIS
     Dosage: ONE TABLET 1 TIME PER DAY PO
     Route: 048
     Dates: start: 20081112, end: 20081119

REACTIONS (1)
  - STEVENS-JOHNSON SYNDROME [None]
